FAERS Safety Report 5697682-3 (Version None)
Quarter: 2008Q2

REPORT INFORMATION
  Report Type: 
  Country: None (occurrence: None)
  Receive Date: 20080407
  Receipt Date: 20080407
  Transmission Date: 20081010
  Serious: No
  Sender: FDA-Public Use
  Company Number: None

PATIENT
  Age: 67 Year
  Sex: Male
  Weight: 81.6475 kg

DRUGS (1)
  1. PLAVIX [Suspect]
     Indication: STENT PLACEMENT
     Dosage: 75 MG TAB  1/DAY
     Dates: start: 20070822

REACTIONS (7)
  - DRY THROAT [None]
  - DYSPHAGIA [None]
  - EPISTAXIS [None]
  - NASAL DRYNESS [None]
  - PRURITUS [None]
  - RASH [None]
  - SINUS DISORDER [None]
